FAERS Safety Report 13691509 (Version 1)
Quarter: 2017Q2

REPORT INFORMATION
  Report Type: Spontaneous
  Country: US (occurrence: US)
  Receive Date: 20170626
  Receipt Date: 20170626
  Transmission Date: 20170830
  Serious: No
  Sender: FDA-Public Use
  Company Number: US-ROCHE-642041

PATIENT
  Age: 54 Year
  Sex: Female

DRUGS (1)
  1. CELLCEPT [Suspect]
     Active Substance: MYCOPHENOLATE MOFETIL\MYCOPHENOLATE MOFETIL HYDROCHLORIDE
     Indication: RETINAL VASCULITIS
     Dosage: DOSAGE FORM: 250 MG
     Route: 048

REACTIONS (1)
  - Hyperkeratosis [Not Recovered/Not Resolved]
